FAERS Safety Report 17077433 (Version 3)
Quarter: 2020Q2

REPORT INFORMATION
  Report Type: Spontaneous
  Country: US (occurrence: US)
  Receive Date: 20191126
  Receipt Date: 20200629
  Transmission Date: 20200713
  Serious: Yes (Hospitalization, Disabling)
  Sender: FDA-Public Use
  Company Number: US-JNJFOC-20191131120

PATIENT
  Age: 46 Year
  Sex: Male

DRUGS (2)
  1. METFORMIN [Suspect]
     Active Substance: METFORMIN HYDROCHLORIDE
     Indication: PRODUCT USED FOR UNKNOWN INDICATION
     Route: 048
  2. INVOKANA [Suspect]
     Active Substance: CANAGLIFLOZIN
     Indication: TYPE 2 DIABETES MELLITUS
     Route: 048
     Dates: start: 20140924

REACTIONS (6)
  - Toe amputation [Unknown]
  - Dry gangrene [Unknown]
  - Infected skin ulcer [Recovering/Resolving]
  - Gangrene [Recovering/Resolving]
  - Osteomyelitis [Recovering/Resolving]
  - Leg amputation [Unknown]

NARRATIVE: CASE EVENT DATE: 20150309
